FAERS Safety Report 5953620-7 (Version None)
Quarter: 2008Q4

REPORT INFORMATION
  Report Type: 
  Country: None (occurrence: None)
  Receive Date: 20081114
  Receipt Date: 20081110
  Transmission Date: 20090506
  Serious: Yes (Hospitalization)
  Sender: FDA-Public Use
  Company Number: B0537690A

PATIENT
  Age: 50 Year
  Sex: Male
  Weight: 90 kg

DRUGS (7)
  1. LAPATINIB [Suspect]
     Route: 048
     Dates: start: 20080908, end: 20081005
  2. DOCETAXEL [Suspect]
     Route: 042
     Dates: start: 20080908
  3. CISPLATIN [Suspect]
     Route: 042
     Dates: start: 20080908
  4. FLUOROURACIL [Suspect]
     Route: 042
     Dates: start: 20080908
  5. PANTOPRAZOLE SODIUM [Concomitant]
     Dosage: 20MG PER DAY
     Route: 048
     Dates: start: 20080901, end: 20080916
  6. ZANTAC [Concomitant]
     Dosage: 150MG TWICE PER DAY
     Route: 048
     Dates: start: 20080901
  7. LASIX [Concomitant]
     Indication: PROPHYLAXIS
     Dosage: 40MG PER DAY
     Dates: start: 20080901

REACTIONS (8)
  - ANOREXIA [None]
  - BLOOD CREATININE INCREASED [None]
  - EPISTAXIS [None]
  - FATIGUE [None]
  - FEBRILE NEUTROPENIA [None]
  - PANCYTOPENIA [None]
  - STOMATITIS [None]
  - THROMBOCYTOPENIA [None]
